FAERS Safety Report 7454082-3 (Version None)
Quarter: 2011Q2

REPORT INFORMATION
  Report Type: 
  Country: None (occurrence: None)
  Receive Date: 20110503
  Receipt Date: 20110420
  Transmission Date: 20111010
  Serious: Yes (Other)
  Sender: FDA-Public Use
  Company Number: FR-BRISTOL-MYERS SQUIBB COMPANY-15690639

PATIENT
  Age: 38 Year
  Sex: Female

DRUGS (13)
  1. APIXABAN [Suspect]
     Indication: EMBOLISM
     Route: 048
     Dates: start: 20110323, end: 20110329
  2. NICOTINE [Concomitant]
     Dates: start: 20110323
  3. PARACETAMOL [Concomitant]
     Dates: start: 20110321
  4. TIMOFEROL [Concomitant]
     Dates: start: 20110201, end: 20110320
  5. ENOXAPARIN SODIUM [Suspect]
     Indication: EMBOLISM
     Route: 058
     Dates: start: 20110323, end: 20110329
  6. CONTRAMAL [Concomitant]
     Dates: start: 20110321, end: 20110323
  7. PLACEBO [Suspect]
     Indication: EMBOLISM
     Route: 048
     Dates: start: 20110323
  8. ALBUTEROL SULFATE AUTOHALER [Concomitant]
     Dates: start: 19960101, end: 20110320
  9. KETOPROFEN [Concomitant]
     Dates: start: 20110318, end: 20110321
  10. FLUINDIONE [Concomitant]
     Dates: start: 20110322, end: 20110322
  11. TEMAZEPAM [Concomitant]
     Dates: start: 20110201, end: 20110320
  12. VITAMIN B6 [Concomitant]
     Dates: start: 20110201, end: 20110320
  13. WARFARIN SODIUM [Suspect]
     Indication: EMBOLISM
     Route: 048
     Dates: start: 20110323, end: 20110328

REACTIONS (1)
  - ECZEMA [None]
